FAERS Safety Report 4987238-X (Version None)
Quarter: 2006Q2

REPORT INFORMATION
  Report Type: 
  Country: None (occurrence: None)
  Receive Date: 20060427
  Receipt Date: 20060427
  Transmission Date: 20061013
  Serious: Yes (Hospitalization)
  Sender: FDA-Public Use
  Company Number: None

PATIENT
  Age: 86 Year
  Sex: Male
  Weight: 72.5755 kg

DRUGS (2)
  1. HUMIRA [Suspect]
     Indication: PSORIASIS
     Dosage: 40 MG IM / 0.8 ML Q 2 WEEKS SQ
     Route: 058
     Dates: end: 20060315
  2. HUMIRA [Suspect]
     Indication: PSORIASIS
     Dosage: 40 MG IM / 0.8 ML Q 2 WEEKS SQ
     Route: 058
     Dates: start: 20060201

REACTIONS (2)
  - RECTAL HAEMORRHAGE [None]
  - THROMBOCYTOPENIA [None]
